FAERS Safety Report 5680475-0 (Version None)
Quarter: 2008Q1

REPORT INFORMATION
  Report Type: 
  Country: None (occurrence: None)
  Receive Date: 20080326
  Receipt Date: 20080317
  Transmission Date: 20080703
  Serious: Yes (Death)
  Sender: FDA-Public Use
  Company Number: B0513854A

PATIENT
  Age: 46 Year
  Sex: Male

DRUGS (1)
  1. LAMICTAL [Suspect]
     Indication: DEPRESSION
     Route: 048
     Dates: start: 20060101, end: 20071124

REACTIONS (1)
  - ASPIRATION [None]
